FAERS Safety Report 6662666-5 (Version None)
Quarter: 2010Q2

REPORT INFORMATION
  Report Type: 
  Country: None (occurrence: None)
  Receive Date: 20100401
  Receipt Date: 20100325
  Transmission Date: 20101027
  Serious: Yes (Hospitalization)
  Sender: FDA-Public Use
  Company Number: US-BIOGENIDEC-2010BI010022

PATIENT
  Age: 49 Year
  Sex: Female
  Weight: 102 kg

DRUGS (3)
  1. AVONEX [Suspect]
     Indication: MULTIPLE SCLEROSIS
     Route: 030
     Dates: start: 20061228
  2. AVONEX [Suspect]
     Route: 030
     Dates: start: 20080618, end: 20081219
  3. AVONEX [Suspect]
     Route: 030
     Dates: start: 20090313

REACTIONS (4)
  - CONCUSSION [None]
  - FALL [None]
  - MEMORY IMPAIRMENT [None]
  - PNEUMONIA [None]
